FAERS Safety Report 23757155 (Version 1)
Quarter: 2024Q2

REPORT INFORMATION
  Report Type: Spontaneous
  Country: US (occurrence: None)
  Receive Date: 20240418
  Receipt Date: 20240418
  Transmission Date: 20240716
  Serious: Yes (Other)
  Sender: FDA-Public Use
  Company Number: None

PATIENT
  Age: 35 Year
  Sex: Male

DRUGS (1)
  1. EPIDIOLEX [Suspect]
     Active Substance: CANNABIDIOL
     Indication: Simple partial seizures
     Dosage: 100MG BID ORAL
     Route: 048
     Dates: start: 20230411

REACTIONS (2)
  - Somnolence [None]
  - Therapy change [None]

NARRATIVE: CASE EVENT DATE: 20240417
